FAERS Safety Report 4292421-5 (Version None)
Quarter: 2004Q1

REPORT INFORMATION
  Report Type: 
  Country: None (occurrence: None)
  Receive Date: 20040126
  Receipt Date: 20031007
  Transmission Date: 20041129
  Serious: No
  Sender: FDA-Public Use
  Company Number: USA030946045

PATIENT
  Age: 66 Year
  Sex: Female
  Weight: 50 kg

DRUGS (17)
  1. FORTEO [Suspect]
     Indication: OSTEOPOROSIS
     Dates: start: 20030801
  2. CELEBREX [Concomitant]
  3. AMITRIPTYLINE HCL [Concomitant]
     Indication: FIBROMYALGIA
  4. THEOPHYLLINE [Concomitant]
     Indication: ASTHMA
  5. PREMARIN [Concomitant]
  6. ALBUTEROL [Concomitant]
  7. ............. [Concomitant]
  8. OXYGEN [Concomitant]
  9. TYLENOL [Concomitant]
     Indication: PAIN
  10. PARAFON FORTE [Concomitant]
     Indication: MUSCLE RELAXANT THERAPY
  11. CALCIUM [Concomitant]
  12. PRILOSEC [Concomitant]
  13. BENTYL [Concomitant]
  14. LOPERAMIDE HCL [Concomitant]
  15. AMBIEN [Concomitant]
  16. LASIX [Concomitant]
  17. NITROGLYCERIN [Concomitant]

REACTIONS (2)
  - ASTHMA [None]
  - PYREXIA [None]
